FAERS Safety Report 4561189-7 (Version None)
Quarter: 2005Q1

REPORT INFORMATION
  Report Type: 
  Country: None (occurrence: None)
  Receive Date: 20050121
  Receipt Date: 20040730
  Transmission Date: 20050727
  Serious: Yes (Hospitalization)
  Sender: FDA-Public Use
  Company Number: 2004UW16097

PATIENT
  Age: 72 Year
  Sex: Female
  Weight: 68.9467 kg

DRUGS (8)
  1. IRESSA [Suspect]
     Indication: PANCREATIC CARCINOMA
     Dosage: 250 MG QD PO
     Route: 048
     Dates: start: 20040723
  2. GEMZAR [Suspect]
     Indication: PANCREATIC CARCINOMA
     Dosage: 1750 MG WEEK IV
     Route: 042
     Dates: start: 20040723
  3. SYNTHROID [Concomitant]
  4. MAXZIDE [Concomitant]
  5. PERCOCET [Concomitant]
  6. CENTRUM [Concomitant]
  7. XANAX [Concomitant]
  8. AMBIEN [Concomitant]

REACTIONS (4)
  - PYREXIA [None]
  - RADIATION SKIN INJURY [None]
  - RASH [None]
  - URINARY TRACT INFECTION [None]
